FAERS Safety Report 8162297-4 (Version None)
Quarter: 2012Q1

REPORT INFORMATION
  Report Type: 
  Country: None (occurrence: None)
  Receive Date: 20120103
  Receipt Date: 20111010
  Transmission Date: 20120608
  Serious: No
  Sender: FDA-Public Use
  Company Number: AE-2011-001955

PATIENT
  Age: 54 Year
  Sex: Male
  Weight: 109.3169 kg

DRUGS (9)
  1. RIBAVIRIN [Concomitant]
  2. FLOMAX [Concomitant]
  3. HYDROCHLOROTHIAZIDE [Concomitant]
  4. INCIVEK [Suspect]
     Dosage: (3 IN 1 D), ORAL
     Route: 048
     Dates: start: 20110923
  5. PEGINTERFERON (PEGINTERFERON ALFA-2A) [Concomitant]
  6. WELLBUTRIN [Concomitant]
  7. NIFEDIPINE [Concomitant]
  8. METFORMIN HCL [Concomitant]
  9. NEXIUM [Concomitant]

REACTIONS (4)
  - OEDEMA [None]
  - PNEUMONIA [None]
  - DYSPNOEA [None]
  - ABASIA [None]
